FAERS Safety Report 6744348-4 (Version None)
Quarter: 2010Q2

REPORT INFORMATION
  Report Type: 
  Country: None (occurrence: None)
  Receive Date: 20100527
  Receipt Date: 20100521
  Transmission Date: 20101027
  Serious: Yes (Hospitalization)
  Sender: FDA-Public Use
  Company Number: MX-SANOFI-AVENTIS-2010SA029576

PATIENT
  Age: 59 Year
  Sex: Female
  Weight: 69 kg

DRUGS (8)
  1. LANTUS [Suspect]
     Indication: TYPE 2 DIABETES MELLITUS
     Dosage: 35IU IN THE MORNING AND 25IU AT NIGHT
     Route: 058
     Dates: start: 19960101
  2. ATACAND HCT [Concomitant]
     Dosage: 16MG +12.5MG
     Route: 048
     Dates: start: 19950101
  3. METOPROLOL [Concomitant]
     Route: 048
     Dates: start: 19950101
  4. FUROSEMIDE [Concomitant]
     Route: 048
     Dates: start: 19950101
  5. PENTOXIFYLLINUM [Concomitant]
     Indication: DEEP VEIN THROMBOSIS
     Route: 048
     Dates: start: 20020101
  6. RANITIDINE [Concomitant]
     Indication: GASTRITIS
     Route: 048
     Dates: start: 20080101
  7. OMEPRAZOLE [Concomitant]
     Indication: GASTRITIS
     Route: 048
     Dates: start: 20080101
  8. ENALAPRIL [Concomitant]

REACTIONS (1)
  - BLOOD PRESSURE INCREASED [None]
